FAERS Safety Report 9254515 (Version 1)
Quarter: 2013Q2

REPORT INFORMATION
  Report Type: Spontaneous
  Country: US (occurrence: None)
  Receive Date: 20130422
  Receipt Date: 20130422
  Transmission Date: 20140414
  Serious: Yes (Other)
  Sender: FDA-Public Use
  Company Number: None

PATIENT
  Age: 48 Year
  Sex: Female

DRUGS (1)
  1. PLAQUENIL [Suspect]
     Indication: SYSTEMIC LUPUS ERYTHEMATOSUS
     Route: 048
     Dates: start: 20101101, end: 20101210

REACTIONS (9)
  - Stevens-Johnson syndrome [None]
  - General physical health deterioration [None]
  - Cardiac failure congestive [None]
  - Renal failure [None]
  - Hepatic failure [None]
  - Cerebrovascular accident [None]
  - Skin lesion [None]
  - Unevaluable event [None]
  - Cardiac disorder [None]
